FAERS Safety Report 12425817 (Version 1)
Quarter: 2016Q2

REPORT INFORMATION
  Report Type: Spontaneous
  Country: FR (occurrence: FR)
  Receive Date: 20160601
  Receipt Date: 20160601
  Transmission Date: 20160815
  Serious: Yes (Death)
  Sender: FDA-Public Use
  Company Number: FR-PFIZER INC-2016279215

PATIENT
  Age: 86 Year
  Sex: Female

DRUGS (11)
  1. PLAVIX [Suspect]
     Active Substance: CLOPIDOGREL BISULFATE
     Indication: AORTIC VALVE REPLACEMENT
     Dosage: 75 MG, DAILY
     Route: 048
     Dates: start: 201506, end: 20151214
  2. DOLIPRANE [Concomitant]
     Active Substance: ACETAMINOPHEN
     Dosage: UNK
  3. LASILIX /00032601/ [Concomitant]
     Active Substance: FUROSEMIDE
     Dosage: 20 MG, UNK
  4. AMLODIPINE [Concomitant]
     Active Substance: AMLODIPINE BESYLATE
     Dosage: UNK
  5. ATORVASTATINE /01326101/ [Concomitant]
     Active Substance: ATORVASTATIN
     Dosage: UNK
  6. KARDEGIC [Suspect]
     Active Substance: ASPIRIN LYSINE
     Indication: AORTIC VALVE REPLACEMENT
     Dosage: 75 MG, DAILY
     Route: 048
     Dates: end: 20151214
  7. VALIUM [Concomitant]
     Active Substance: DIAZEPAM
     Dosage: UNK
  8. VITAMIN B6 [Concomitant]
     Active Substance: PYRIDOXINE HYDROCHLORIDE
     Dosage: UNK
  9. ZAMUDOL [Concomitant]
     Active Substance: TRAMADOL HYDROCHLORIDE
     Dosage: 50 MG, UNK
  10. EFFEXOR LP [Suspect]
     Active Substance: VENLAFAXINE HYDROCHLORIDE
     Indication: DEPRESSIVE SYMPTOM
     Dosage: 37.5 MG, 1X/DAY
     Route: 048
     Dates: end: 20151214
  11. VITAMIN B1 [Concomitant]
     Active Substance: THIAMINE HYDROCHLORIDE
     Dosage: UNK

REACTIONS (2)
  - Haemorrhage intracranial [Fatal]
  - Cerebral haematoma [Fatal]

NARRATIVE: CASE EVENT DATE: 20151214
